FAERS Safety Report 11814246 (Version 2)
Quarter: 2015Q4

REPORT INFORMATION
  Report Type: Spontaneous
  Country: US (occurrence: US)
  Receive Date: 20151209
  Receipt Date: 20151211
  Transmission Date: 20160305
  Serious: No
  Sender: FDA-Public Use
  Company Number: US-BAYER-2015-479319

PATIENT
  Sex: Female

DRUGS (1)
  1. CLIMARA [Suspect]
     Active Substance: ESTRADIOL
     Dosage: 0.075 MG
     Route: 062
     Dates: start: 2010

REACTIONS (4)
  - Alopecia [None]
  - Hyperhidrosis [None]
  - Product adhesion issue [None]
  - Skin disorder [None]
